FAERS Safety Report 6909259-X (Version None)
Quarter: 2010Q3

REPORT INFORMATION
  Report Type: 
  Country: None (occurrence: None)
  Receive Date: 20100805
  Receipt Date: 20100728
  Transmission Date: 20110219
  Serious: Yes (Disabling)
  Sender: FDA-Public Use
  Company Number: GB-B.I. PHARMACEUTICALS,INC./RIDGEFIELD-2010-BP-08789YA

PATIENT
  Age: 75 Year
  Sex: Male
  Weight: 62 kg

DRUGS (5)
  1. TAMSULOSIN HCL [Suspect]
     Indication: URINE FLOW DECREASED
     Dosage: 400UG, UID/QD
     Route: 048
  2. DUTASTERIDE [Suspect]
     Indication: BENIGN PROSTATIC HYPERPLASIA
     Dosage: 500UG. UID/QD
     Dates: start: 20091101
  3. ZOPICLONE [Concomitant]
     Indication: DEPRESSION
     Dosage: 3.75 MG
     Dates: start: 20100601
  4. ZOPICLONE [Concomitant]
     Indication: INSOMNIA
  5. MIRTAZAPINE [Concomitant]
     Indication: MAJOR DEPRESSION
     Route: 048
     Dates: start: 20100201, end: 20100501

REACTIONS (1)
  - MAJOR DEPRESSION [None]
